FAERS Safety Report 4780474-7 (Version None)
Quarter: 2005Q3

REPORT INFORMATION
  Report Type: 
  Country: None (occurrence: None)
  Receive Date: 20050926
  Receipt Date: 20050912
  Transmission Date: 20060218
  Serious: Yes (Other)
  Sender: FDA-Public Use
  Company Number: 2005130423

PATIENT
  Sex: Female

DRUGS (4)
  1. PROVERA [Suspect]
     Indication: HORMONE REPLACEMENT THERAPY
     Dosage: (FIRST CYCLE); SEE IMAGE
     Dates: start: 19830101, end: 19890101
  2. PROVERA [Suspect]
     Indication: HORMONE REPLACEMENT THERAPY
     Dosage: (FIRST CYCLE); SEE IMAGE
     Dates: start: 19920101, end: 19940101
  3. PREMARIN [Suspect]
     Indication: HORMONE REPLACEMENT THERAPY
     Dosage: (FIRST CYCLE); SEE IMAGE
     Dates: start: 19830101, end: 19890101
  4. PREMARIN [Suspect]
     Indication: HORMONE REPLACEMENT THERAPY
     Dosage: (FIRST CYCLE); SEE IMAGE
     Dates: start: 19920101, end: 19940101

REACTIONS (2)
  - BREAST CANCER FEMALE [None]
  - POSTMASTECTOMY LYMPHOEDEMA SYNDROME [None]
